FAERS Safety Report 7120747-6 (Version None)
Quarter: 2010Q4

REPORT INFORMATION
  Report Type: 
  Country: None (occurrence: None)
  Receive Date: 20101124
  Receipt Date: 20101119
  Transmission Date: 20110411
  Serious: Yes (Hospitalization)
  Sender: FDA-Public Use
  Company Number: US-US-EMD SERONO, INC.-239206K09USA

PATIENT
  Sex: Female
  Weight: 61 kg

DRUGS (4)
  1. REBIF [Suspect]
     Indication: MULTIPLE SCLEROSIS
     Route: 058
     Dates: start: 20090603, end: 20090101
  2. REBIF [Suspect]
     Route: 058
     Dates: start: 20090709, end: 20090716
  3. REBIF [Suspect]
  4. TIZANIDINE HCL [Concomitant]
     Indication: TREMOR
     Route: 065

REACTIONS (1)
  - MULTIPLE SCLEROSIS RELAPSE [None]
